FAERS Safety Report 5939758-9 (Version None)
Quarter: 2008Q4

REPORT INFORMATION
  Report Type: 
  Country: None (occurrence: None)
  Receive Date: 20081030
  Receipt Date: 20081030
  Transmission Date: 20090506
  Serious: Yes (Other)
  Sender: FDA-Public Use
  Company Number: None

PATIENT
  Age: 46 Year
  Sex: Female
  Weight: 73.4827 kg

DRUGS (1)
  1. LAMICTAL [Suspect]
     Indication: DEPRESSION
     Dosage: 50 MG 1X DAY  : 200 MG 1 X DAY
     Dates: start: 20080801

REACTIONS (3)
  - CRYING [None]
  - DYSPNOEA [None]
  - PANIC ATTACK [None]
